FAERS Safety Report 9432171 (Version 2)
Quarter: 2013Q4

REPORT INFORMATION
  Report Type: Spontaneous
  Country: DE (occurrence: None)
  Receive Date: 20130726
  Receipt Date: 20131125
  Transmission Date: 20140711
  Serious: Yes (Other)
  Sender: FDA-Public Use
  Company Number: AUR-APL-2013-06172

PATIENT
  Age: 73 Year
  Sex: Male

DRUGS (3)
  1. SIMVASTATIN [Suspect]
     Indication: BLOOD CHOLESTEROL INCREASED
     Dosage: 40MG (40MG 1 IN 1D)
     Dates: start: 200812, end: 20121203
  2. VOTUM [Suspect]
     Indication: HYPERTENSION
     Route: 048
     Dates: start: 200912, end: 20121203
  3. ASPIRIN PROTECT (ACETYLSALICYLIC ACID) [Concomitant]

REACTIONS (4)
  - Gamma-glutamyltransferase increased [None]
  - Alanine aminotransferase increased [None]
  - Aspartate aminotransferase increased [None]
  - Unevaluable event [None]
